FAERS Safety Report 4615562-9 (Version None)
Quarter: 2005Q1

REPORT INFORMATION
  Report Type: 
  Country: None (occurrence: None)
  Receive Date: 20050322
  Receipt Date: 20041216
  Transmission Date: 20050727
  Serious: Yes (Hospitalization)
  Sender: FDA-Public Use
  Company Number: SG-MERCK-0503SGP00008

PATIENT
  Sex: Male

DRUGS (1)
  1. VIOXX [Suspect]
     Indication: ANALGESIC EFFECT
     Route: 048
     Dates: start: 20040928

REACTIONS (4)
  - ANGINA PECTORIS [None]
  - GASTROOESOPHAGEAL REFLUX DISEASE [None]
  - STOMACH DISCOMFORT [None]
  - TENDONITIS [None]
